FAERS Safety Report 22323863 (Version 1)
Quarter: 2023Q2

REPORT INFORMATION
  Report Type: Report from Study
  Country: US (occurrence: US)
  Receive Date: 20230516
  Receipt Date: 20230516
  Transmission Date: 20230722
  Serious: Yes (Other)
  Sender: FDA-Public Use
  Company Number: US-ABBVIE-4766919

PATIENT
  Sex: Male

DRUGS (1)
  1. RINVOQ [Suspect]
     Active Substance: UPADACITINIB
     Indication: Colitis
     Dosage: FORM STRENGTH 45 MG??8 WEEKS
     Route: 048
     Dates: start: 20230506

REACTIONS (4)
  - Colostomy [Unknown]
  - Somnolence [Unknown]
  - Off label use [Unknown]
  - Expulsion of medication [Unknown]
